FAERS Safety Report 8558541-1 (Version None)
Quarter: 2012Q3

REPORT INFORMATION
  Report Type: 
  Country: None (occurrence: None)
  Receive Date: 20120801
  Receipt Date: 20120710
  Transmission Date: 20120928
  Serious: No
  Sender: FDA-Public Use
  Company Number: US-ASTRAZENECA-2012SE47720

PATIENT
  Age: 55 Year
  Sex: Female

DRUGS (2)
  1. LEXAPRO [Suspect]
     Route: 048
     Dates: start: 20120601
  2. NEXIUM [Suspect]
     Route: 048

REACTIONS (4)
  - INTENTIONAL DRUG MISUSE [None]
  - HEPATIC PAIN [None]
  - GALLBLADDER PAIN [None]
  - ANXIETY [None]
